FAERS Safety Report 9386913 (Version 1)
Quarter: 2013Q3

REPORT INFORMATION
  Report Type: Report from Study
  Country: US (occurrence: US)
  Receive Date: 20130708
  Receipt Date: 20130708
  Transmission Date: 20140515
  Serious: Yes (Other)
  Sender: FDA-Public Use
  Company Number: US-ROCHE-1244620

PATIENT
  Age: 68 Year
  Sex: Female

DRUGS (10)
  1. RITUXIMAB [Suspect]
     Indication: LYMPHOMA
     Dosage: 1MG/0.8CC IN RIGHT EYE
     Route: 031
     Dates: start: 20100118
  2. RITUXIMAB [Suspect]
     Dosage: 1MG/0.1CC IN BOTH EYES
     Route: 031
     Dates: start: 20110117
  3. RITUXIMAB [Suspect]
     Dosage: 1MG/0.1CC RIGHT EYE
     Route: 031
     Dates: start: 20110211
  4. RITUXIMAB [Suspect]
     Dosage: 1MG/0.1CC IN BOTH EYES
     Route: 031
     Dates: start: 20110223
  5. RITUXIMAB [Suspect]
     Dosage: 1MG/0.08CC IN LEFT EYE
     Route: 031
     Dates: start: 20100120
  6. METHOTREXATE [Suspect]
     Indication: LYMPHOMA
     Dosage: 400 MCG/0.08CC IN RIGHT EYE
     Route: 031
     Dates: start: 20100118
  7. METHOTREXATE [Suspect]
     Dosage: 200 MCG/0.1CC IN BOTH EYES
     Route: 031
     Dates: start: 20110117
  8. METHOTREXATE [Suspect]
     Dosage: 400 MCG/0.1CC IN THE RIGHT EYE
     Route: 031
     Dates: start: 20110211
  9. METHOTREXATE [Suspect]
     Dosage: 400 MCG/0.1CC IN BOTH EYES
     Route: 031
     Dates: start: 20110323
  10. METHOTREXATE [Suspect]
     Dosage: 400 MCG/0.08CC IN LEFT EYE
     Route: 031
     Dates: start: 20100120

REACTIONS (1)
  - Non-infectious endophthalmitis [Unknown]
